FAERS Safety Report 10626346 (Version 1)
Quarter: 2014Q4

REPORT INFORMATION
  Report Type: Spontaneous
  Country: US (occurrence: None)
  Receive Date: 20141121
  Receipt Date: 20141121
  Transmission Date: 20150529
  Serious: No
  Sender: FDA-Public Use
  Company Number: 163-10004-14074064

PATIENT
  Age: 41 Year
  Sex: Female

DRUGS (6)
  1. TRAMADOL (TRAMADOL) [Concomitant]
     Active Substance: TRAMADOL
  2. OTEZLA [Suspect]
     Active Substance: APREMILAST
     Indication: PSORIATIC ARTHROPATHY
     Route: 048
     Dates: start: 20140709, end: 20140814
  3. VITAMIN D (ERGOCALCIFEROL) [Concomitant]
     Active Substance: ERGOCALCIFEROL
  4. ALPRAZOLAM (ALPRAZOLAM) [Concomitant]
     Active Substance: ALPRAZOLAM
  5. HYDROCODONE/APAP (VICODIN) [Concomitant]
  6. GABAPENTIN (GABAPENTIN) [Concomitant]
     Active Substance: GABAPENTIN

REACTIONS (2)
  - Diarrhoea [None]
  - Abdominal pain upper [None]

NARRATIVE: CASE EVENT DATE: 20140711
